FAERS Safety Report 4801027-8 (Version None)
Quarter: 2005Q4

REPORT INFORMATION
  Report Type: 
  Country: None (occurrence: None)
  Receive Date: 20051012
  Receipt Date: 20051004
  Transmission Date: 20060501
  Serious: Yes (Death, Hospitalization)
  Sender: FDA-Public Use
  Company Number: GXKR2005GB01754

PATIENT
  Age: 6 Year
  Sex: Female

DRUGS (15)
  1. AMITRIPTYLINE (NGX)(AMITRIPTYLINE) UNKNOWN [Suspect]
     Indication: PAIN
     Dosage: 6 MG, QN; 3.4 MG; BID; 10.4 MG QD; 8 MG BID
  2. AMITRIPTYLINE (NGX)(AMITRIPTYLINE) UNKNOWN [Suspect]
     Indication: PAIN
     Dosage: 6 MG, QN; 3.4 MG; BID; 10.4 MG QD; 8 MG BID
  3. AMITRIPTYLINE (NGX)(AMITRIPTYLINE) UNKNOWN [Suspect]
     Indication: PAIN
     Dosage: 6 MG, QN; 3.4 MG; BID; 10.4 MG QD; 8 MG BID
  4. AMITRIPTYLINE (NGX)(AMITRIPTYLINE) UNKNOWN [Suspect]
     Indication: PAIN
     Dosage: 6 MG, QN; 3.4 MG; BID; 10.4 MG QD; 8 MG BID
  5. CISAPRIDE(CISAPRIDE) [Suspect]
     Indication: GASTROOESOPHAGEAL REFLUX DISEASE
     Dosage: 2.2 MG, BID
  6. SELENIUM (SELENIUM) [Concomitant]
  7. CARNITINE (CARNITINE) [Concomitant]
  8. IRON (IRON) [Concomitant]
  9. FOLIC ACID [Concomitant]
  10. BLOOD TRANSFUSION, AUXILIARY PRODUCTS (NO INGREDIENTS/SUBSTANCES) [Concomitant]
  11. ACETAMINOPHEN [Concomitant]
  12. OPIOIDS (NO INGREDIENTS/SUBSTANCES) [Concomitant]
  13. RANITIDINE [Concomitant]
  14. FUROSEMIDE [Concomitant]
  15. AMILORIDE (AMILORIDE) [Concomitant]

REACTIONS (6)
  - ARRHYTHMIA [None]
  - CARDIAC FAILURE [None]
  - CARDIOTOXICITY [None]
  - CONGESTIVE CARDIOMYOPATHY [None]
  - TACHYCARDIA [None]
  - VENTRICULAR DYSFUNCTION [None]
